FAERS Safety Report 6685880-1 (Version None)
Quarter: 2010Q2

REPORT INFORMATION
  Report Type: 
  Country: None (occurrence: None)
  Receive Date: 20100419
  Receipt Date: 20100412
  Transmission Date: 20101027
  Serious: Yes (Hospitalization, Other)
  Sender: FDA-Public Use
  Company Number: US-ASTRAZENECA-2006UW24120

PATIENT
  Age: 14596 Day
  Sex: Female
  Weight: 69.4 kg

DRUGS (27)
  1. SEROQUEL [Suspect]
     Indication: DEPRESSION
     Dosage: 100-500 MG
     Route: 048
     Dates: start: 20031215
  2. SEROQUEL [Suspect]
     Indication: PSYCHOTIC DISORDER
     Dosage: 100-500 MG
     Route: 048
     Dates: start: 20031215
  3. SEROQUEL [Suspect]
     Indication: MOOD SWINGS
     Dosage: 100-500 MG
     Route: 048
     Dates: start: 20031215
  4. SEROQUEL [Suspect]
     Indication: BIPOLAR DISORDER
     Dosage: 100-500 MG
     Route: 048
     Dates: start: 20031215
  5. SEROQUEL [Suspect]
     Route: 048
     Dates: start: 20050919
  6. SEROQUEL [Suspect]
     Route: 048
     Dates: start: 20050919
  7. SEROQUEL [Suspect]
     Route: 048
     Dates: start: 20050919
  8. SEROQUEL [Suspect]
     Route: 048
     Dates: start: 20050919
  9. SEROQUEL [Suspect]
     Route: 048
     Dates: end: 20050101
  10. SEROQUEL [Suspect]
     Route: 048
     Dates: end: 20050101
  11. SEROQUEL [Suspect]
     Route: 048
     Dates: end: 20050101
  12. SEROQUEL [Suspect]
     Route: 048
     Dates: end: 20050101
  13. ZYPREXA [Suspect]
     Route: 048
     Dates: start: 20010228
  14. COLACE [Concomitant]
     Dosage: 100-200 MG
     Route: 048
     Dates: start: 20030121
  15. XANAX [Concomitant]
     Indication: PANIC ATTACK
     Dosage: 1-6 MG
     Route: 048
     Dates: start: 20030121
  16. LEXAPRO [Concomitant]
     Dosage: 10-30 MG
     Route: 048
     Dates: start: 20030121
  17. AMBIEN [Concomitant]
     Dosage: 5-10 MG
     Route: 048
     Dates: start: 20020524
  18. MAGNESIUM HYDROXIDE TAB [Concomitant]
     Dosage: 5-10 MG
     Route: 048
     Dates: start: 20030126
  19. TOPAMAX [Concomitant]
     Indication: CONVULSION
     Dosage: 10-100 MG
     Route: 048
     Dates: start: 20030101
  20. TOPAMAX [Concomitant]
     Dates: start: 20030101
  21. IBUPROFEN [Concomitant]
     Dosage: 200-400 MG
     Route: 048
     Dates: start: 20010707
  22. TEMAZEPAM [Concomitant]
     Dosage: 15-30 MG
     Route: 048
     Dates: start: 20010228
  23. HYDROCODONE BITARTRATE [Concomitant]
     Dosage: 7.5/500 MG
     Dates: start: 20030113
  24. NEURONTIN [Concomitant]
     Dosage: 100-300 MG
     Route: 048
     Dates: start: 20030121
  25. LITHIUM CARBONATE [Concomitant]
     Dosage: 300-1200 MG
     Dates: start: 20040106
  26. NAPROXEN [Concomitant]
     Dosage: 500-550 MG
     Dates: start: 20021031
  27. DARVOCET [Concomitant]
     Dosage: 100-200 MG
     Route: 048
     Dates: start: 20030126

REACTIONS (4)
  - DIABETES MELLITUS [None]
  - DIABETIC RETINOPATHY [None]
  - HYPERGLYCAEMIA [None]
  - TYPE 2 DIABETES MELLITUS [None]
